FAERS Safety Report 6308559-4 (Version None)
Quarter: 2009Q3

REPORT INFORMATION
  Report Type: 
  Country: None (occurrence: None)
  Receive Date: 20090813
  Receipt Date: 20090807
  Transmission Date: 20100115
  Serious: Yes (Death)
  Sender: FDA-Public Use
  Company Number: US-CELGENEUS-163-20785-09051661

PATIENT
  Sex: Male

DRUGS (4)
  1. THALOMID [Suspect]
     Indication: MULTIPLE MYELOMA
     Route: 048
     Dates: start: 20080601, end: 20090514
  2. THALOMID [Suspect]
     Route: 048
     Dates: start: 20041201
  3. THALOMID [Suspect]
     Route: 048
     Dates: start: 20050101
  4. THALOMID [Suspect]
     Route: 048
     Dates: start: 20050401

REACTIONS (1)
  - SUDDEN CARDIAC DEATH [None]
